FAERS Safety Report 6840655-5 (Version None)
Quarter: 2010Q3

REPORT INFORMATION
  Report Type: 
  Country: None (occurrence: None)
  Receive Date: 20100713
  Receipt Date: 20100713
  Transmission Date: 20110219
  Serious: Yes (Life-Threatening)
  Sender: FDA-Public Use
  Company Number: None

PATIENT
  Age: 50 Year
  Sex: Male
  Weight: 90.7194 kg

DRUGS (1)
  1. PROMETHAZINE [Suspect]
     Indication: BACK PAIN
     Dosage: 25 MG IV
     Route: 042
     Dates: start: 20051210, end: 20051210

REACTIONS (19)
  - ANXIETY [None]
  - BURNING SENSATION [None]
  - COAGULOPATHY [None]
  - DEEP VEIN THROMBOSIS [None]
  - DEPRESSION [None]
  - DIVORCED [None]
  - IATROGENIC INJURY [None]
  - INFERTILITY [None]
  - INFUSION RELATED REACTION [None]
  - INJECTION SITE SCAR [None]
  - LOSS OF CONSCIOUSNESS [None]
  - MARITAL PROBLEM [None]
  - PAIN [None]
  - PULMONARY EMBOLISM [None]
  - RESPIRATORY DISORDER [None]
  - TREMOR [None]
  - VASCULAR INJURY [None]
  - VOCAL CORD DISORDER [None]
  - WRONG TECHNIQUE IN DRUG USAGE PROCESS [None]
